FAERS Safety Report 6296483-5 (Version None)
Quarter: 2009Q3

REPORT INFORMATION
  Report Type: 
  Country: None (occurrence: None)
  Receive Date: 20090804
  Receipt Date: 20090730
  Transmission Date: 20100115
  Serious: Yes (Life-Threatening, Hospitalization)
  Sender: FDA-Public Use
  Company Number: A0799920A

PATIENT
  Age: 57 Year
  Sex: Female
  Weight: 88 kg

DRUGS (5)
  1. PAROXETINE [Suspect]
     Indication: DEPRESSION
  2. BUPROPION HCL [Suspect]
     Indication: DEPRESSION
  3. EXEMESTANE [Suspect]
     Dosage: 25MG PER DAY
     Route: 048
     Dates: start: 20050930
  4. ARIPIPRAZOLE [Suspect]
  5. ALPRAZOLAM [Suspect]

REACTIONS (3)
  - DEPRESSION [None]
  - DRUG ABUSE [None]
  - SUICIDAL IDEATION [None]
